FAERS Safety Report 8541655-X (Version None)
Quarter: 2012Q3

REPORT INFORMATION
  Report Type: 
  Country: None (occurrence: None)
  Receive Date: 20120726
  Receipt Date: 20120718
  Transmission Date: 20120928
  Serious: Yes (Hospitalization)
  Sender: FDA-Public Use
  Company Number: US-GLAXOSMITHKLINE-A0986988A

PATIENT
  Age: 41 Year
  Sex: Female

DRUGS (1)
  1. FLOLAN [Suspect]
     Dosage: 12NG CONTINUOUS
     Route: 065
     Dates: start: 20120229

REACTIONS (3)
  - ABDOMINAL PAIN UPPER [None]
  - INSOMNIA [None]
  - BACK PAIN [None]
